FAERS Safety Report 9091303 (Version 1)
Quarter: 2013Q1

REPORT INFORMATION
  Report Type: Spontaneous
  Country: US (occurrence: US)
  Receive Date: 20130201
  Receipt Date: 20130201
  Transmission Date: 20140127
  Serious: Yes (Hospitalization)
  Sender: FDA-Public Use
  Company Number: US-UCBSA-030725

PATIENT
  Age: 18 Year
  Sex: Female

DRUGS (3)
  1. CIMZIA [Suspect]
     Indication: CROHN^S DISEASE
     Dosage: INDUCTION DOSE
     Route: 058
     Dates: start: 20110308, end: 2011
  2. CIMZIA [Suspect]
     Indication: CROHN^S DISEASE
     Dates: start: 2011, end: 2011
  3. CIMZIA [Suspect]
     Indication: CROHN^S DISEASE
     Dates: start: 20110713, end: 20110812

REACTIONS (3)
  - Crohn^s disease [Recovered/Resolved]
  - Diarrhoea [Unknown]
  - Blood iron increased [Unknown]
